FAERS Safety Report 20638107 (Version 2)
Quarter: 2022Q2

REPORT INFORMATION
  Report Type: Spontaneous
  Country: GB (occurrence: GB)
  Receive Date: 20220325
  Receipt Date: 20220506
  Transmission Date: 20220721
  Serious: Yes (Death, Other)
  Sender: FDA-Public Use
  Company Number: GB-AMGEN-GBRSP2022048839

PATIENT

DRUGS (3)
  1. ARANESP [Suspect]
     Active Substance: DARBEPOETIN ALFA
     Indication: Anaemia
     Dosage: 200 MICROGRAM
     Route: 058
  2. IRON ISOMALTOSIDE 1000 [Concomitant]
     Active Substance: IRON ISOMALTOSIDE 1000
     Dosage: 1000 MILLIGRAM (OVER 60 MIN)
     Route: 042
  3. INSULIN NOS [Concomitant]
     Active Substance: INSULIN NOS

REACTIONS (10)
  - Death [Fatal]
  - Myocardial injury [Unknown]
  - Post procedural haemorrhage [Unknown]
  - Acute kidney injury [Unknown]
  - Delirium [Unknown]
  - Embolic stroke [Unknown]
  - Haemoglobin decreased [Unknown]
  - Cerebral disorder [Unknown]
  - Debridement [Unknown]
  - Drug ineffective [Unknown]
